FAERS Safety Report 6183646-2 (Version None)
Quarter: 2009Q2

REPORT INFORMATION
  Report Type: 
  Country: None (occurrence: None)
  Receive Date: 20090508
  Receipt Date: 20090507
  Transmission Date: 20091009
  Serious: Yes (Death)
  Sender: FDA-Public Use
  Company Number: DE-JNJFOC-20090501549

PATIENT
  Age: 58 Year
  Sex: Male

DRUGS (5)
  1. TAVANIC [Suspect]
     Indication: COUGH
     Route: 048
  2. TAVANIC [Suspect]
     Indication: RESPIRATORY DISORDER
     Route: 048
  3. METAMIZOL [Suspect]
     Indication: DRUG USE FOR UNKNOWN INDICATION
     Route: 048
  4. ACC AKUT [Suspect]
     Indication: DRUG USE FOR UNKNOWN INDICATION
     Route: 048
  5. HEXORAL [Suspect]
     Indication: DRUG USE FOR UNKNOWN INDICATION
     Route: 055

REACTIONS (2)
  - COMPLETED SUICIDE [None]
  - INTENTIONAL OVERDOSE [None]
